FAERS Safety Report 14601675 (Version 1)
Quarter: 2018Q1

REPORT INFORMATION
  Report Type: Spontaneous
  Country: PT (occurrence: PT)
  Receive Date: 20180306
  Receipt Date: 20180306
  Transmission Date: 20180509
  Serious: Yes (Life-Threatening, Hospitalization)
  Sender: FDA-Public Use
  Company Number: PT-009507513-1802PRT013591

PATIENT
  Age: 69 Year
  Sex: Male

DRUGS (7)
  1. GLUCOSAMINE [Concomitant]
     Active Substance: GLUCOSAMINE
     Dosage: 1500 MG QD
  2. SIMVASTATIN. [Concomitant]
     Active Substance: SIMVASTATIN
     Dosage: 0+0+1
  3. ASPIRIN. [Concomitant]
     Active Substance: ASPIRIN
     Dosage: 0+1+0
  4. CARVEDILOL. [Concomitant]
     Active Substance: CARVEDILOL
     Dosage: 1 + 0 + 0
  5. HYGROTON [Concomitant]
     Active Substance: CHLORTHALIDONE
     Dosage: 1 + 0 + 0
     Route: 048
  6. JANUMET [Suspect]
     Active Substance: METFORMIN HYDROCHLORIDE\SITAGLIPTIN PHOSPHATE
     Indication: DIABETES MELLITUS
     Dosage: 1+ 0 + 1
     Route: 048
     Dates: start: 2014, end: 20180216
  7. EXFORGE [Concomitant]
     Active Substance: AMLODIPINE BESYLATE\VALSARTAN
     Dosage: 1 + 0 + 0
     Route: 048

REACTIONS (5)
  - Acute kidney injury [Recovering/Resolving]
  - Urine flow decreased [Recovering/Resolving]
  - Lactic acidosis [Recovering/Resolving]
  - Vomiting [Recovering/Resolving]
  - Dehydration [Recovering/Resolving]

NARRATIVE: CASE EVENT DATE: 20180216
